FAERS Safety Report 10379115 (Version 3)
Quarter: 2015Q1

REPORT INFORMATION
  Report Type: Spontaneous
  Country: US (occurrence: US)
  Receive Date: 20140812
  Receipt Date: 20150119
  Transmission Date: 20150720
  Serious: Yes (Hospitalization, Other)
  Sender: FDA-Public Use
  Company Number: US-GLAXOSMITHKLINE-A1084602A

PATIENT
  Age: 61 Year
  Sex: Male

DRUGS (7)
  1. PRILOSEC [Concomitant]
     Active Substance: OMEPRAZOLE MAGNESIUM
  2. ZESTRIL [Concomitant]
     Active Substance: LISINOPRIL
  3. SEROQUEL [Concomitant]
     Active Substance: QUETIAPINE FUMARATE
  4. EFFEXOR [Concomitant]
     Active Substance: VENLAFAXINE HYDROCHLORIDE
  5. NIACIN. [Concomitant]
     Active Substance: NIACIN
  6. ATIVAN [Concomitant]
     Active Substance: LORAZEPAM
  7. VOTRIENT [Suspect]
     Active Substance: PAZOPANIB HYDROCHLORIDE
     Indication: RENAL CELL CARCINOMA
     Dosage: 400 MG, 1D
     Route: 048
     Dates: start: 201305

REACTIONS (10)
  - Weight decreased [Recovering/Resolving]
  - Infection [Recovering/Resolving]
  - Decreased appetite [Recovered/Resolved]
  - Constipation [Recovering/Resolving]
  - Gastric disorder [Recovering/Resolving]
  - Cranioplasty [Recovering/Resolving]
  - Hair colour changes [Recovering/Resolving]
  - Weight increased [Unknown]
  - Dysgeusia [Recovering/Resolving]
  - Diarrhoea [Recovered/Resolved]

NARRATIVE: CASE EVENT DATE: 201305
